FAERS Safety Report 20689139 (Version 4)
Quarter: 2022Q3

REPORT INFORMATION
  Report Type: Spontaneous
  Country: US (occurrence: US)
  Receive Date: 20220408
  Receipt Date: 20220715
  Transmission Date: 20221027
  Serious: Yes (Hospitalization)
  Sender: FDA-Public Use
  Company Number: US-KARYOPHARM-2022KPT000412

PATIENT

DRUGS (24)
  1. XPOVIO [Suspect]
     Active Substance: SELINEXOR
     Indication: Plasma cell myeloma
     Dosage: 80 MG, WEEKLY
     Route: 048
     Dates: start: 20220308, end: 20220508
  2. XPOVIO [Suspect]
     Active Substance: SELINEXOR
     Dosage: 60 MG, WEEKLY
     Route: 048
     Dates: start: 2022, end: 20220627
  3. DEXAMETHASONE ACETATE [Concomitant]
     Active Substance: DEXAMETHASONE ACETATE
  4. ONDANSETRON [Concomitant]
     Active Substance: ONDANSETRON
  5. PROMETHAZINE [Concomitant]
     Active Substance: PROMETHAZINE HYDROCHLORIDE
  6. FENTANYL [Concomitant]
     Active Substance: FENTANYL
  7. PERCOCET [Concomitant]
     Active Substance: ACETAMINOPHEN\OXYCODONE HYDROCHLORIDE
  8. LEVOTHYROXINE [Concomitant]
     Active Substance: LEVOTHYROXINE
  9. FOLIC ACID [Concomitant]
     Active Substance: FOLIC ACID
  10. HUMULIN 70/30 [Concomitant]
     Active Substance: INSULIN HUMAN
  11. QUETIAPINE [Concomitant]
     Active Substance: QUETIAPINE
  12. ACYCLOVIR [Concomitant]
     Active Substance: ACYCLOVIR
  13. LYRICA [Concomitant]
     Active Substance: PREGABALIN
  14. CLONAZEPAM [Concomitant]
     Active Substance: CLONAZEPAM
  15. XARELTO [Concomitant]
     Active Substance: RIVAROXABAN
  16. ALBUTEROL SULFATE [Concomitant]
     Active Substance: ALBUTEROL SULFATE
  17. MONTELUKAST [Concomitant]
     Active Substance: MONTELUKAST SODIUM
  18. OLANZAPINE [Concomitant]
     Active Substance: OLANZAPINE
  19. PROTONIX [Concomitant]
     Active Substance: PANTOPRAZOLE SODIUM
  20. VALACYCLOVIR HYDROCHLORIDE [Concomitant]
     Active Substance: VALACYCLOVIR HYDROCHLORIDE
  21. LENALIDOMIDE [Concomitant]
     Active Substance: LENALIDOMIDE
  22. NINLARO [Concomitant]
     Active Substance: IXAZOMIB CITRATE
  23. POMALYST [Concomitant]
     Active Substance: POMALIDOMIDE
  24. AUGMENTIN [Concomitant]
     Active Substance: AMOXICILLIN\CLAVULANATE POTASSIUM

REACTIONS (8)
  - Oedema peripheral [Recovering/Resolving]
  - Asthma [Unknown]
  - Pain [Unknown]
  - Fall [Unknown]
  - Rhinitis allergic [Unknown]
  - Oral infection [Unknown]
  - Dizziness [Unknown]
  - Asthenia [Unknown]

NARRATIVE: CASE EVENT DATE: 20220101
